FAERS Safety Report 4611211-4 (Version None)
Quarter: 2005Q2

REPORT INFORMATION
  Report Type: 
  Country: None (occurrence: None)
  Receive Date: 20050314
  Receipt Date: 20040218
  Transmission Date: 20051028
  Serious: Yes (Hospitalization)
  Sender: FDA-Public Use
  Company Number: USA040156130

PATIENT
  Age: 59 Year
  Sex: Female
  Weight: 66 kg

DRUGS (1)
  1. GEMZAR [Suspect]
     Indication: BREAST CANCER METASTATIC
     Dosage: 1641 MG
     Dates: start: 20031101

REACTIONS (5)
  - BLOOD TEST ABNORMAL [None]
  - CELLULITIS [None]
  - DYSPHONIA [None]
  - OEDEMA [None]
  - PULMONARY OEDEMA [None]
